FAERS Safety Report 13503559 (Version 1)
Quarter: 2017Q2

REPORT INFORMATION
  Report Type: Spontaneous
  Country: DE (occurrence: DE)
  Receive Date: 20170502
  Receipt Date: 20170502
  Transmission Date: 20170830
  Serious: Yes (Hospitalization)
  Sender: FDA-Public Use
  Company Number: DE-PFIZER INC-2017184283

PATIENT
  Age: 23 Year
  Sex: Female
  Weight: 60 kg

DRUGS (6)
  1. VENLAFAXINE HCL [Suspect]
     Active Substance: VENLAFAXINE HYDROCHLORIDE
     Indication: DEPRESSION
     Dosage: 300 MG, UNK
     Route: 048
     Dates: start: 201407, end: 201508
  2. MONTELUKAST [Concomitant]
     Active Substance: MONTELUKAST SODIUM
     Indication: ASTHMA
     Dosage: 10 MG, UNK
     Route: 048
     Dates: start: 201501
  3. LORAZEPAM. [Concomitant]
     Active Substance: LORAZEPAM
     Indication: THERAPY CHANGE
     Dosage: 1 MG, UNK
     Route: 048
     Dates: start: 201507, end: 201607
  4. MIRTAZAPIN [Concomitant]
     Active Substance: MIRTAZAPINE
     Indication: DEPRESSION
     Dosage: 60 MG, UNK
     Route: 048
     Dates: start: 201407
  5. CHLORPROTHIXENE [Concomitant]
     Active Substance: CHLORPROTHIXENE
     Indication: DEPRESSION
     Dosage: 15 MG, UNK
     Route: 048
     Dates: start: 201507, end: 201508
  6. VIANI DOSAGE AEROSOL [Concomitant]
     Indication: ASTHMA
     Dosage: UNK
     Dates: start: 201501

REACTIONS (3)
  - Withdrawal syndrome [Recovered/Resolved]
  - Vomiting [Recovered/Resolved]
  - Hypophagia [Recovered/Resolved]

NARRATIVE: CASE EVENT DATE: 20150813
